FAERS Safety Report 15297728 (Version 2)
Quarter: 2018Q3

REPORT INFORMATION
  Report Type: Spontaneous
  Country: US (occurrence: US)
  Receive Date: 20180820
  Receipt Date: 20180827
  Transmission Date: 20181010
  Serious: Yes (Hospitalization)
  Sender: FDA-Public Use
  Company Number: US-UNITED THERAPEUTICS-UNT-2018-012748

PATIENT
  Sex: Female

DRUGS (2)
  1. REMODULIN [Suspect]
     Active Substance: TREPROSTINIL
     Dosage: 0.0185 ?G/KG, CONTINUING
     Route: 058
     Dates: start: 20180630
  2. REMODULIN [Suspect]
     Active Substance: TREPROSTINIL
     Indication: PULMONARY ARTERIAL HYPERTENSION
     Dosage: 0.0205 ?G/KG, CONTINUING
     Route: 058
     Dates: start: 20180628

REACTIONS (7)
  - Chest discomfort [Unknown]
  - Drug dose omission [Unknown]
  - Dyspnoea [Unknown]
  - Pain [Unknown]
  - Diarrhoea [Unknown]
  - Complication associated with device [Unknown]
  - Device occlusion [Unknown]

NARRATIVE: CASE EVENT DATE: 20180811
